FAERS Safety Report 14531000 (Version 1)
Quarter: 2018Q1

REPORT INFORMATION
  Report Type: Report from Study
  Country: US (occurrence: US)
  Receive Date: 20180214
  Receipt Date: 20180214
  Transmission Date: 20180509
  Serious: Yes (Hospitalization)
  Sender: FDA-Public Use
  Company Number: US-PUMA BIOTECHNOLOGY, LTD.-2017US015338

PATIENT

DRUGS (2)
  1. LOPERAMIDE [Concomitant]
     Active Substance: LOPERAMIDE
     Indication: PRODUCT USED FOR UNKNOWN INDICATION
  2. NERLYNX [Suspect]
     Active Substance: NERATINIB
     Indication: RECTAL CANCER METASTATIC
     Dosage: 6 TABLETS, DAILY
     Route: 048
     Dates: start: 20171030, end: 20171109

REACTIONS (5)
  - Disease progression [Unknown]
  - Metastases to central nervous system [Unknown]
  - Abdominal discomfort [Unknown]
  - Off label use [Unknown]
  - Abdominal pain upper [Unknown]

NARRATIVE: CASE EVENT DATE: 20180103
